FAERS Safety Report 4390787-9 (Version None)
Quarter: 2004Q3

REPORT INFORMATION
  Report Type: 
  Country: None (occurrence: None)
  Receive Date: 20040706
  Receipt Date: 20040706
  Transmission Date: 20050211
  Serious: Yes (Other)
  Sender: FDA-Public Use
  Company Number: None

PATIENT
  Age: 88 Year
  Sex: Female

DRUGS (10)
  1. DURAGESIC [Suspect]
     Dosage: Q 72 HOURS
     Dates: start: 20040403, end: 20040628
  2. DIGITEK [Concomitant]
  3. WARFARIN SODIUM [Concomitant]
  4. FUROSEMIDE [Concomitant]
  5. ZOLOFT [Concomitant]
  6. LISINOPRIL [Concomitant]
  7. RANITIDINE [Concomitant]
  8. FOSAMAX [Concomitant]
  9. LUMIGAN [Concomitant]
  10. SYNTHROID [Concomitant]

REACTIONS (4)
  - APPLICATION SITE ERYTHEMA [None]
  - APPLICATION SITE IRRITATION [None]
  - DRUG INEFFECTIVE [None]
  - PHARMACEUTICAL PRODUCT COMPLAINT [None]
